FAERS Safety Report 20627028 (Version 1)
Quarter: 2022Q1

REPORT INFORMATION
  Report Type: Spontaneous
  Country: US (occurrence: US)
  Receive Date: 20220323
  Receipt Date: 20220323
  Transmission Date: 20220423
  Serious: Yes (Other)
  Sender: FDA-Public Use
  Company Number: US-JNJFOC-20220340163

PATIENT
  Sex: Male

DRUGS (1)
  1. INVEGA [Suspect]
     Active Substance: PALIPERIDONE
     Indication: Schizophrenia
     Route: 048

REACTIONS (6)
  - Erectile dysfunction [Unknown]
  - Ejaculation disorder [Unknown]
  - Tremor [Unknown]
  - Weight increased [Unknown]
  - Libido decreased [Unknown]
  - Drug ineffective [Unknown]
